FAERS Safety Report 8474382-8 (Version None)
Quarter: 2012Q2

REPORT INFORMATION
  Report Type: 
  Country: None (occurrence: None)
  Receive Date: 20120628
  Receipt Date: 20120209
  Transmission Date: 20120825
  Serious: Yes (Death)
  Sender: FDA-Public Use
  Company Number: US-MYLANLABS-2012S1002883

PATIENT
  Age: 45 Year
  Sex: Female

DRUGS (5)
  1. CLOZAPINE [Suspect]
     Route: 048
  2. CLOZAPINE [Suspect]
     Indication: SCHIZOPHRENIA
     Route: 048
  3. ZOFRAN [Concomitant]
  4. ZITHROMAX [Concomitant]
  5. HALDOL [Concomitant]

REACTIONS (1)
  - PNEUMONIA [None]
